FAERS Safety Report 9452636 (Version 1)
Quarter: 2013Q3

REPORT INFORMATION
  Report Type: Spontaneous
  Country: US (occurrence: US)
  Receive Date: 20130812
  Receipt Date: 20130812
  Transmission Date: 20140515
  Serious: No
  Sender: FDA-Public Use
  Company Number: US-PFIZER INC-2013232123

PATIENT
  Age: 56 Year
  Sex: Female
  Weight: 61.22 kg

DRUGS (5)
  1. NEURONTIN [Suspect]
     Indication: FIBROMYALGIA
     Dosage: 600 MG IN THE MORNING, 600 MG IN AFTERNOON AND 1200 MG AT NIGHT, 3X/DAY
     Dates: start: 201202
  2. NEURONTIN [Suspect]
     Dosage: 3000 MG, 1X/DAY
     Dates: start: 201304
  3. NEURONTIN [Suspect]
     Dosage: 600 MG IN THE MORNING, 600 MG IN AFTERNOON AND 1200 MG AT NIGHT, 3X/DAY
     Dates: start: 2013
  4. LISINOPRIL [Concomitant]
     Indication: BLOOD PRESSURE ABNORMAL
     Dosage: 40 MG, DAILY
  5. VISTARIL [Concomitant]
     Indication: PAIN
     Dosage: UNK, DAILY

REACTIONS (5)
  - Off label use [Unknown]
  - Feeling abnormal [Recovered/Resolved]
  - Drug intolerance [Recovered/Resolved]
  - Drug ineffective for unapproved indication [Unknown]
  - Psoriasis [Unknown]
